FAERS Safety Report 25940231 (Version 2)
Quarter: 2025Q4

REPORT INFORMATION
  Report Type: Spontaneous
  Country: JP (occurrence: JP)
  Receive Date: 20251020
  Receipt Date: 20251021
  Transmission Date: 20260117
  Serious: Yes (Death, Other)
  Sender: MERCK SHARP & DOHME LLC
  Company Number: JP-009507513-2340180

PATIENT
  Age: 72 Year
  Sex: Male

DRUGS (3)
  1. KEYTRUDA [Suspect]
     Active Substance: PEMBROLIZUMAB
     Indication: Gastric cancer stage IV
     Route: 041
     Dates: start: 20250808, end: 20250808
  2. TRASTUZUMAB [Suspect]
     Active Substance: TRASTUZUMAB
     Indication: Gastric cancer stage IV
     Route: 041
     Dates: start: 20250808, end: 20250808
  3. OXALIPLATIN [Suspect]
     Active Substance: OXALIPLATIN
     Indication: Gastric cancer stage IV
     Route: 041
     Dates: start: 20250808, end: 20250808

REACTIONS (5)
  - Malignant neoplasm progression [Fatal]
  - SARS-CoV-2 test positive [Unknown]
  - Pyrexia [Unknown]
  - Depressed level of consciousness [Not Recovered/Not Resolved]
  - Cancer pain [Unknown]

NARRATIVE: CASE EVENT DATE: 20250801
